FAERS Safety Report 20258454 (Version 1)
Quarter: 2021Q4

REPORT INFORMATION
  Report Type: Spontaneous
  Country: DE (occurrence: DE)
  Receive Date: 20211230
  Receipt Date: 20211230
  Transmission Date: 20220303
  Serious: Yes (Hospitalization, Other)
  Sender: FDA-Public Use
  Company Number: DE-ADRED-05628-04

PATIENT
  Age: 75 Year
  Sex: Male

DRUGS (9)
  1. CLOPIDOGREL [Suspect]
     Active Substance: CLOPIDOGREL BISULFATE
     Dosage: 75 MILLIGRAM DAILY; 1-0-0-0
     Route: 048
  2. EDOXABAN [Suspect]
     Active Substance: EDOXABAN
     Dosage: 30 MILLIGRAM DAILY;   1-0-0-0
     Route: 048
  3. Eryfer [Concomitant]
     Dosage: 100 MILLIGRAM DAILY;  1-0-0-0
     Route: 048
  4. TORSEMIDE [Concomitant]
     Active Substance: TORSEMIDE
     Dosage: 10 MILLIGRAM DAILY;  1-1-0-0
     Route: 048
  5. PANTOPRAZOLE [Concomitant]
     Active Substance: PANTOPRAZOLE
     Dosage: 80 MILLIGRAM DAILY; 1-0-1-0
     Route: 048
  6. EZETIMIBE [Concomitant]
     Active Substance: EZETIMIBE
     Dosage: 10 MILLIGRAM DAILY;  0-0-1-0,  ABZ 10MG
     Route: 048
  7. ATORVASTATIN [Concomitant]
     Active Substance: ATORVASTATIN
     Dosage: 2 DOSAGE FORMS DAILY; 20 MG, 0-0-2-0,
     Route: 048
  8. MELPERONE [Concomitant]
     Active Substance: MELPERONE
     Dosage: 25 MILLIGRAM DAILY;  0-0-0-1
     Route: 048
  9. METOPROLOL [Concomitant]
     Active Substance: METOPROLOL
     Dosage: 190 MILLIGRAM DAILY;  1-0-1-0
     Route: 048

REACTIONS (2)
  - Haematochezia [Unknown]
  - Pallor [Unknown]
